FAERS Safety Report 7320590-9 (Version None)
Quarter: 2011Q1

REPORT INFORMATION
  Report Type: 
  Country: None (occurrence: None)
  Receive Date: 20110223
  Receipt Date: 20110223
  Transmission Date: 20110831
  Serious: Yes (Other)
  Sender: FDA-Public Use
  Company Number: None

PATIENT
  Sex: Female
  Weight: 90.7194 kg

DRUGS (2)
  1. POLYETHYLENE GLYCOL [Suspect]
     Indication: CONSTIPATION
     Dosage: 17 GM IN 8 OZ OF LIQUID ONCE DAILY EPIDURAL
     Route: 008
     Dates: start: 20110217, end: 20110218
  2. MIRALAX [Concomitant]

REACTIONS (1)
  - DYSKINESIA [None]
